FAERS Safety Report 9033418 (Version 1)
Quarter: 2013Q1

REPORT INFORMATION
  Report Type: Spontaneous
  Country: CA (occurrence: CA)
  Receive Date: 20130128
  Receipt Date: 20130128
  Transmission Date: 20140127
  Serious: Yes (Other)
  Sender: FDA-Public Use
  Company Number: CA-AMGEN-CANSP2012065536

PATIENT
  Sex: Male

DRUGS (2)
  1. ENBREL [Suspect]
     Indication: PSORIATIC ARTHROPATHY
     Dosage: UNK UNK, QWK
     Dates: start: 20080901, end: 201208
  2. SYNTHROID [Concomitant]
     Dosage: UNK

REACTIONS (2)
  - Depression [Recovered/Resolved]
  - Arthritis [Not Recovered/Not Resolved]
